FAERS Safety Report 5515026-4 (Version None)
Quarter: 2007Q4

REPORT INFORMATION
  Report Type: 
  Country: None (occurrence: None)
  Receive Date: 20071113
  Receipt Date: 20061120
  Transmission Date: 20080405
  Serious: No
  Sender: FDA-Public Use
  Company Number: A0628132A

PATIENT
  Age: 71 Year
  Sex: Female

DRUGS (3)
  1. COREG [Suspect]
     Indication: ATRIAL FIBRILLATION
     Dosage: 12.5MG TWICE PER DAY
     Route: 048
  2. ATACAND [Concomitant]
  3. WARFARIN SODIUM [Concomitant]

REACTIONS (2)
  - DIZZINESS [None]
  - FATIGUE [None]
